FAERS Safety Report 8460241-3 (Version None)
Quarter: 2012Q2

REPORT INFORMATION
  Report Type: 
  Country: None (occurrence: None)
  Receive Date: 20120622
  Receipt Date: 20120612
  Transmission Date: 20120825
  Serious: Yes (Other)
  Sender: FDA-Public Use
  Company Number: PR-ABBOTT-12P-131-0932238-00

PATIENT
  Sex: Female
  Weight: 49.032 kg

DRUGS (4)
  1. UNKNOWN MEDICATION [Concomitant]
     Indication: CROHN'S DISEASE
     Route: 048
     Dates: start: 20110401
  2. HUMIRA [Suspect]
     Indication: CROHN'S DISEASE
     Route: 058
     Dates: start: 20120514
  3. ASACOL [Concomitant]
     Indication: CROHN'S DISEASE
     Route: 048
     Dates: start: 20110401
  4. HEMATRON [Concomitant]
     Indication: CROHN'S DISEASE
     Route: 048
     Dates: start: 20110401

REACTIONS (7)
  - SPEECH DISORDER [None]
  - TONGUE DISORDER [None]
  - HYPOAESTHESIA ORAL [None]
  - DIZZINESS [None]
  - FATIGUE [None]
  - SOMNOLENCE [None]
  - HYPOTENSION [None]
